FAERS Safety Report 25074182 (Version 1)
Quarter: 2025Q1

REPORT INFORMATION
  Report Type: Spontaneous
  Country: US (occurrence: None)
  Receive Date: 20250313
  Receipt Date: 20250313
  Transmission Date: 20250409
  Serious: Yes (Hospitalization)
  Sender: FDA-CTU
  Company Number: None

PATIENT
  Age: 55 Year
  Sex: Male
  Weight: 73.5 kg

DRUGS (3)
  1. TAXOL [Suspect]
     Active Substance: PACLITAXEL
     Dates: end: 20250226
  2. NIVOLUMAB [Suspect]
     Active Substance: NIVOLUMAB
  3. RAMUCIRUMAB [Suspect]
     Active Substance: RAMUCIRUMAB

REACTIONS (6)
  - Neuropathy peripheral [None]
  - Fall [None]
  - Intracranial mass [None]
  - Metastasis [None]
  - Encephalitis [None]
  - Sinusitis [None]

NARRATIVE: CASE EVENT DATE: 20250305
